FAERS Safety Report 7042088-8 (Version None)
Quarter: 2010Q4

REPORT INFORMATION
  Report Type: 
  Country: None (occurrence: None)
  Receive Date: 20101013
  Receipt Date: 20101007
  Transmission Date: 20110411
  Serious: Yes (Other)
  Sender: FDA-Public Use
  Company Number: ES-BRACCO-000317

PATIENT
  Age: 46 Year
  Sex: Female
  Weight: 60 kg

DRUGS (2)
  1. MULTIHANCE [Suspect]
     Indication: TINNITUS
     Dosage: 3 ML/SEC
     Route: 042
     Dates: start: 20100908, end: 20100908
  2. MULTIHANCE [Suspect]
     Indication: NUCLEAR MAGNETIC RESONANCE IMAGING
     Dosage: 3 ML/SEC
     Route: 042
     Dates: start: 20100908, end: 20100908

REACTIONS (4)
  - BRONCHOSPASM [None]
  - CHOKING [None]
  - DYSPHAGIA [None]
  - NERVOUSNESS [None]
